FAERS Safety Report 10621061 (Version 1)
Quarter: 2014Q4

REPORT INFORMATION
  Report Type: Spontaneous
  Country: FR (occurrence: FR)
  Receive Date: 20141203
  Receipt Date: 20141203
  Transmission Date: 20150529
  Serious: Yes (Hospitalization)
  Sender: FDA-Public Use
  Company Number: FR-ROCHE-1499328

PATIENT
  Age: 72 Year
  Sex: Female

DRUGS (3)
  1. ROCEPHINE [Suspect]
     Active Substance: CEFTRIAXONE SODIUM
     Indication: PYREXIA
     Route: 042
     Dates: start: 20141027, end: 20141027
  2. GENTAMYCIN [Suspect]
     Active Substance: GENTAMICIN
     Indication: PYREXIA
     Route: 042
     Dates: start: 20141027, end: 20141027
  3. BACTRIM [Suspect]
     Active Substance: SULFAMETHOXAZOLE\TRIMETHOPRIM
     Indication: INFECTIOUS DISEASE CARRIER
     Route: 048
     Dates: start: 20141021, end: 20141027

REACTIONS (3)
  - Transaminases increased [Recovered/Resolved]
  - Dermo-hypodermitis [Recovered/Resolved]
  - Pyrexia [Recovered/Resolved]

NARRATIVE: CASE EVENT DATE: 20141028
